FAERS Safety Report 9174175 (Version 2)
Quarter: 2013Q2

REPORT INFORMATION
  Report Type: Spontaneous
  Country: US (occurrence: US)
  Receive Date: 20130320
  Receipt Date: 20130419
  Transmission Date: 20140414
  Serious: Yes (Other)
  Sender: FDA-Public Use
  Company Number: CHPA2013US004618

PATIENT
  Age: 91 Year
  Sex: Male

DRUGS (2)
  1. GAS-X EXTRA STRENGTH SOFTGELS [Suspect]
     Indication: FLATULENCE
     Dosage: 250 MG, QD
     Route: 048
     Dates: end: 20130312
  2. GAS-X EXTRA STRENGTH SOFTGELS [Suspect]
     Dosage: 250 DF, QD
     Route: 048
     Dates: end: 20130312

REACTIONS (3)
  - Diabetes mellitus [Not Recovered/Not Resolved]
  - Poor peripheral circulation [Not Recovered/Not Resolved]
  - Expired drug administered [Unknown]
